FAERS Safety Report 6035060-8 (Version None)
Quarter: 2009Q1

REPORT INFORMATION
  Report Type: 
  Country: None (occurrence: None)
  Receive Date: 20090109
  Receipt Date: 20090104
  Transmission Date: 20090719
  Serious: Yes (Other)
  Sender: FDA-Public Use
  Company Number: 2009EN000002

PATIENT
  Age: 14 Year
  Sex: Male

DRUGS (1)
  1. ONCASPAR [Suspect]
     Indication: ACUTE LYMPHOCYTIC LEUKAEMIA
     Dosage: 2400 MG/M**2; IM
     Route: 030

REACTIONS (1)
  - CEREBROVASCULAR ACCIDENT [None]
